FAERS Safety Report 7603187-2 (Version None)
Quarter: 2011Q3

REPORT INFORMATION
  Report Type: 
  Country: None (occurrence: None)
  Receive Date: 20110712
  Receipt Date: 20110706
  Transmission Date: 20111222
  Serious: Yes (Death, Life-Threatening, Hospitalization)
  Sender: FDA-Public Use
  Company Number: FR-SANOFI-AVENTIS-2011SA043076

PATIENT
  Age: 45 Year
  Sex: Female

DRUGS (13)
  1. TRACLEER [Concomitant]
     Route: 048
  2. PREVISCAN [Concomitant]
     Route: 048
  3. LASIX [Suspect]
     Route: 048
     Dates: end: 20110505
  4. ESIDRIX [Suspect]
     Route: 048
     Dates: end: 20110505
  5. LEVOTHYROXINE SODIUM [Concomitant]
     Route: 048
  6. ALDACTONE [Suspect]
     Dosage: 150 MG IN MORNING AND 50 MG IN EVENING
     Dates: end: 20110505
  7. VENTAVIS [Concomitant]
     Dosage: DOSE:10 MICROGRAM(S)/MILLILITRE
     Route: 055
  8. POTASSIUM CHLORIDE [Suspect]
     Route: 048
     Dates: end: 20110505
  9. PANTOPRAZOLE [Concomitant]
  10. TADALAFIL [Concomitant]
     Route: 048
  11. PROZAC [Concomitant]
  12. CORDARONE [Concomitant]
     Route: 048
  13. ALPRAZOLAM [Suspect]
     Route: 048
     Dates: end: 20110505

REACTIONS (5)
  - HYPERKALAEMIA [None]
  - CARDIAC FAILURE [None]
  - RENAL FAILURE ACUTE [None]
  - ANURIA [None]
  - DEHYDRATION [None]
